FAERS Safety Report 9247708 (Version 1)
Quarter: 2013Q1

REPORT INFORMATION
  Report Type: Spontaneous
  Country: US (occurrence: None)
  Receive Date: 20130305
  Receipt Date: 20130305
  Transmission Date: 20140127
  Serious: Yes (Other)
  Sender: FDA-Public Use
  Company Number: 163-2188012092302

PATIENT
  Age: 70 Year
  Sex: Male

DRUGS (1)
  1. REVLIMID [Suspect]
     Indication: PLASMA CELL MYELOMA
     Dosage: 05/11/2012 - ONGOING, CAPSULE, 25 MG, 21 IN 28 D, PO
     Route: 048

REACTIONS (1)
  - Pulmonary embolism [None]
